FAERS Safety Report 4707127-5 (Version None)
Quarter: 2005Q3

REPORT INFORMATION
  Report Type: 
  Country: None (occurrence: None)
  Receive Date: 20050706
  Receipt Date: 20050628
  Transmission Date: 20060218
  Serious: Yes (Hospitalization)
  Sender: FDA-Public Use
  Company Number: CH-ROCHE-408933

PATIENT
  Age: 48 Year
  Sex: Male

DRUGS (6)
  1. MYCOPHENOLATE MOFETIL [Suspect]
     Route: 048
     Dates: start: 20041015
  2. PROGRAF [Suspect]
     Route: 048
     Dates: start: 20041001
  3. PREDNISONE TAB [Suspect]
     Route: 048
     Dates: start: 20041001
  4. TENORMIN [Concomitant]
  5. DIAMICRON [Concomitant]
     Route: 048
  6. LESCOL [Concomitant]

REACTIONS (4)
  - HYPERGLYCAEMIA [None]
  - POLYDIPSIA [None]
  - POLYURIA [None]
  - TACHYPNOEA [None]
